FAERS Safety Report 19482839 (Version 13)
Quarter: 2023Q2

REPORT INFORMATION
  Report Type: Spontaneous
  Country: JP (occurrence: JP)
  Receive Date: 20210701
  Receipt Date: 20230623
  Transmission Date: 20230721
  Serious: Yes (Other)
  Sender: FDA-Public Use
  Company Number: JP-BRISTOL-MYERS SQUIBB COMPANY-BMS-2021-061820

PATIENT
  Age: 71 Year
  Sex: Male

DRUGS (10)
  1. YERVOY [Suspect]
     Active Substance: IPILIMUMAB
     Indication: Non-small cell lung cancer recurrent
     Route: 041
  2. YERVOY [Suspect]
     Active Substance: IPILIMUMAB
     Route: 041
  3. OPDIVO [Suspect]
     Active Substance: NIVOLUMAB
     Indication: Non-small cell lung cancer recurrent
     Route: 041
  4. OPDIVO [Suspect]
     Active Substance: NIVOLUMAB
     Route: 041
  5. OPDIVO [Suspect]
     Active Substance: NIVOLUMAB
     Route: 041
  6. OPDIVO [Suspect]
     Active Substance: NIVOLUMAB
     Route: 041
  7. OPDIVO [Suspect]
     Active Substance: NIVOLUMAB
     Dosage: MONOTHERAPY
     Route: 041
  8. PEMETREXED [Suspect]
     Active Substance: PEMETREXED
     Indication: Non-small cell lung cancer recurrent
  9. CARBOPLATIN [Suspect]
     Active Substance: CARBOPLATIN
     Indication: Non-small cell lung cancer recurrent
  10. CARBOPLATIN [Suspect]
     Active Substance: CARBOPLATIN

REACTIONS (7)
  - Myelosuppression [Unknown]
  - Rash [Unknown]
  - Secondary adrenocortical insufficiency [Unknown]
  - Aspartate aminotransferase increased [Unknown]
  - Alanine aminotransferase increased [Unknown]
  - Decreased appetite [Unknown]
  - Malaise [Unknown]
